FAERS Safety Report 24144605 (Version 2)
Quarter: 2025Q3

REPORT INFORMATION
  Report Type: Report from Study
  Country: US (occurrence: US)
  Receive Date: 20240728
  Receipt Date: 20250910
  Transmission Date: 20251021
  Serious: Yes (Hospitalization, Other)
  Sender: ABBVIE
  Company Number: US-ABBVIE-5399080

PATIENT
  Age: 53 Year
  Sex: Female

DRUGS (2)
  1. SKYRIZI [Suspect]
     Active Substance: RISANKIZUMAB-RZAA
     Indication: Crohn^s disease
     Route: 058
     Dates: start: 20230807
  2. SKYRIZI [Suspect]
     Active Substance: RISANKIZUMAB-RZAA
     Dosage: STRENGTH: 360MG/2.4M
     Route: 058
     Dates: start: 202312

REACTIONS (10)
  - Adrenal disorder [Unknown]
  - Sepsis [Recovered/Resolved]
  - Nephrolithiasis [Unknown]
  - Sepsis [Recovering/Resolving]
  - Abdominal abscess [Unknown]
  - Post procedural sepsis [Unknown]
  - Device issue [Unknown]
  - Gastrointestinal obstruction [Unknown]
  - Diarrhoea [Unknown]
  - Abdominal distension [Unknown]

NARRATIVE: CASE EVENT DATE: 20230101
